FAERS Safety Report 8443711-3 (Version None)
Quarter: 2012Q2

REPORT INFORMATION
  Report Type: 
  Country: None (occurrence: None)
  Receive Date: 20120618
  Receipt Date: 20120605
  Transmission Date: 20120825
  Serious: Yes (Hospitalization, Other)
  Sender: FDA-Public Use
  Company Number: NL-ELI_LILLY_AND_COMPANY-NL201206001291

PATIENT
  Sex: Female
  Weight: 84 kg

DRUGS (4)
  1. ZYPREXA [Suspect]
     Indication: PSYCHOTIC DISORDER
     Dosage: 10 MG, BID
     Dates: start: 20000603, end: 20120415
  2. LORAZEPAM [Concomitant]
     Dosage: 1 MG, UNKNOWN
  3. NITRAZEPAM [Concomitant]
     Dosage: 5 MG, UNK
  4. PAROXETINE [Concomitant]
     Dosage: 10 MG, UNK

REACTIONS (1)
  - AGRANULOCYTOSIS [None]
